FAERS Safety Report 13357264 (Version 1)
Quarter: 2017Q1

REPORT INFORMATION
  Report Type: Spontaneous
  Country: FR (occurrence: FR)
  Receive Date: 20170322
  Receipt Date: 20170322
  Transmission Date: 20170429
  Serious: Yes (Other)
  Sender: FDA-Public Use
  Company Number: FR-ROCHE-1909160

PATIENT
  Age: 57 Year
  Sex: Male

DRUGS (18)
  1. ACAMPROSATE [Concomitant]
     Active Substance: ACAMPROSATE
  2. RISPERIDONE. [Concomitant]
     Active Substance: RISPERIDONE
  3. ALFUZOSINE [Concomitant]
     Active Substance: ALFUZOSIN HYDROCHLORIDE
  4. ATENOLOL. [Concomitant]
     Active Substance: ATENOLOL
  5. METRONIDAZOLE. [Concomitant]
     Active Substance: METRONIDAZOLE
  6. SERTRALINE [Concomitant]
     Active Substance: SERTRALINE HYDROCHLORIDE
  7. VALIUM [Suspect]
     Active Substance: DIAZEPAM
     Indication: PRODUCT USED FOR UNKNOWN INDICATION
     Route: 048
     Dates: start: 20160623
  8. CEFTRIAXONE. [Concomitant]
     Active Substance: CEFTRIAXONE
     Route: 065
  9. COLCHICINE. [Concomitant]
     Active Substance: COLCHICINE
  10. DARBEPOETINE ALFA [Concomitant]
  11. SALBUTAMOL [Concomitant]
     Active Substance: ALBUTEROL
  12. AZATHIOPRINE. [Concomitant]
     Active Substance: AZATHIOPRINE
  13. ONEALFA [Suspect]
     Active Substance: ALFACALCIDOL
     Indication: PRODUCT USED FOR UNKNOWN INDICATION
     Route: 048
     Dates: start: 20160623
  14. FUROSEMIDE. [Concomitant]
     Active Substance: FUROSEMIDE
  15. PANTOPRAZOLE [Concomitant]
     Active Substance: PANTOPRAZOLE SODIUM
  16. ATORVASTATIN [Concomitant]
     Active Substance: ATORVASTATIN
  17. PARACETAMOL [Concomitant]
     Active Substance: ACETAMINOPHEN
  18. FLUINDIONE [Concomitant]
     Active Substance: FLUINDIONE

REACTIONS (6)
  - Hypercalcaemia [Recovered/Resolved]
  - Hallucination, visual [Recovered/Resolved]
  - Coma scale abnormal [Recovered/Resolved]
  - Confusional state [Recovered/Resolved]
  - Tremor [Recovered/Resolved]
  - Disorganised speech [Recovered/Resolved]
